FAERS Safety Report 23364371 (Version 2)
Quarter: 2024Q1

REPORT INFORMATION
  Report Type: Report from Study
  Country: JP (occurrence: JP)
  Receive Date: 20240104
  Receipt Date: 20240227
  Transmission Date: 20240410
  Serious: Yes (Hospitalization, Other)
  Sender: FDA-Public Use
  Company Number: JP-002147023-NVSJ2023JP018613

PATIENT
  Age: 48 Year
  Sex: Female

DRUGS (18)
  1. SCEMBLIX [Suspect]
     Active Substance: ASCIMINIB HYDROCHLORIDE
     Indication: Chronic myeloid leukaemia
     Dosage: 80 MG
     Route: 048
     Dates: start: 20221017, end: 20221029
  2. SCEMBLIX [Suspect]
     Active Substance: ASCIMINIB HYDROCHLORIDE
     Dosage: 80 MG
     Route: 048
     Dates: start: 20221104, end: 20221107
  3. SCEMBLIX [Suspect]
     Active Substance: ASCIMINIB HYDROCHLORIDE
     Dosage: 80 MG
     Route: 048
     Dates: start: 20221117, end: 20221223
  4. SCEMBLIX [Suspect]
     Active Substance: ASCIMINIB HYDROCHLORIDE
     Dosage: 80 MG
     Route: 048
     Dates: start: 20230109, end: 20230116
  5. SCEMBLIX [Suspect]
     Active Substance: ASCIMINIB HYDROCHLORIDE
     Dosage: 80 MG
     Route: 048
     Dates: start: 20230120, end: 20230130
  6. SCEMBLIX [Suspect]
     Active Substance: ASCIMINIB HYDROCHLORIDE
     Dosage: 80 MG
     Route: 048
     Dates: start: 20230215, end: 20230314
  7. METHOTREXATE [Suspect]
     Active Substance: METHOTREXATE
     Indication: Chronic myeloid leukaemia
     Dosage: 15 MG
     Route: 028
     Dates: start: 20221026, end: 20221026
  8. METHOTREXATE [Suspect]
     Active Substance: METHOTREXATE
     Dosage: 15 MG
     Route: 028
     Dates: start: 20221224, end: 20221224
  9. METHOTREXATE [Suspect]
     Active Substance: METHOTREXATE
     Dosage: 15 MG
     Route: 028
     Dates: start: 20230201, end: 20230201
  10. METHOTREXATE [Suspect]
     Active Substance: METHOTREXATE
     Indication: Chronic myeloid leukaemia
     Dosage: 1413 MG
     Route: 065
     Dates: start: 20221031
  11. METHOTREXATE [Suspect]
     Active Substance: METHOTREXATE
     Dosage: 1413 MG
     Route: 065
     Dates: start: 20221124
  12. METHOTREXATE [Suspect]
     Active Substance: METHOTREXATE
     Dosage: 1413 MG
     Route: 065
     Dates: start: 20230201
  13. DEXAMETHASONE SODIUM PHOSPHATE [Suspect]
     Active Substance: DEXAMETHASONE PHOSPHATE\DEXAMETHASONE SODIUM PHOSPHATE
     Indication: Stem cell transplant
     Dosage: 3.3 MG
     Route: 028
     Dates: start: 20221026, end: 20221026
  14. DEXAMETHASONE SODIUM PHOSPHATE [Suspect]
     Active Substance: DEXAMETHASONE PHOSPHATE\DEXAMETHASONE SODIUM PHOSPHATE
     Dosage: 3.3 MG
     Route: 028
     Dates: start: 20221224, end: 20221224
  15. DEXAMETHASONE SODIUM PHOSPHATE [Suspect]
     Active Substance: DEXAMETHASONE PHOSPHATE\DEXAMETHASONE SODIUM PHOSPHATE
     Dosage: 3.3 MG
     Route: 028
     Dates: start: 20230201, end: 20230201
  16. CYTARABINE [Suspect]
     Active Substance: CYTARABINE
     Indication: Chronic myeloid leukaemia
     Dosage: 2860 MG
     Route: 065
     Dates: start: 20221101, end: 20221102
  17. CYTARABINE [Suspect]
     Active Substance: CYTARABINE
     Dosage: 2860 MG
     Route: 065
     Dates: start: 20221125, end: 20221126
  18. CYTARABINE [Suspect]
     Active Substance: CYTARABINE
     Dosage: 2860 MG
     Route: 065
     Dates: start: 20230202, end: 20230203

REACTIONS (5)
  - Neutrophil count decreased [Recovered/Resolved]
  - Neutrophil count decreased [Recovered/Resolved]
  - Lymphocyte count decreased [Unknown]
  - White blood cell count decreased [Unknown]
  - Neutrophil count decreased [Recovered/Resolved]

NARRATIVE: CASE EVENT DATE: 20221029
